FAERS Safety Report 6278815-7 (Version None)
Quarter: 2009Q3

REPORT INFORMATION
  Report Type: 
  Country: None (occurrence: None)
  Receive Date: 20090723
  Receipt Date: 20090715
  Transmission Date: 20100115
  Serious: Yes (Other)
  Sender: FDA-Public Use
  Company Number: NL-BIOGENIDEC-2009BI022000

PATIENT
  Age: 53 Year
  Sex: Female

DRUGS (3)
  1. TYSABRI [Suspect]
     Indication: MULTIPLE SCLEROSIS
     Route: 042
     Dates: start: 20070913, end: 20090706
  2. BACLOFEN [Concomitant]
     Indication: MUSCLE SPASTICITY
     Dates: start: 20051014
  3. LIVIAL [Concomitant]
     Dates: start: 20060101

REACTIONS (1)
  - HERPES ZOSTER [None]
